FAERS Safety Report 5405416-2 (Version None)
Quarter: 2007Q3

REPORT INFORMATION
  Report Type: 
  Country: None (occurrence: None)
  Receive Date: 20070803
  Receipt Date: 20070725
  Transmission Date: 20080115
  Serious: Yes (Other)
  Sender: FDA-Public Use
  Company Number: AU-PFIZER INC-2007002280

PATIENT
  Sex: Female
  Weight: 46 kg

DRUGS (9)
  1. LYRICA [Suspect]
     Indication: NEURITIS
     Route: 048
     Dates: start: 20070301, end: 20070301
  2. LYRICA [Suspect]
     Indication: BACK PAIN
  3. ASPIRIN [Concomitant]
     Route: 048
  4. LIPITOR [Concomitant]
     Route: 048
  5. METOPROLOL SUCCINATE [Concomitant]
     Route: 048
  6. NORVASC [Concomitant]
     Route: 048
  7. TAMOXIFEN CITRATE [Concomitant]
     Route: 048
  8. ALL OTHER THERAPEUTIC PRODUCTS [Concomitant]
     Route: 048
  9. TRAMADOL HCL [Concomitant]

REACTIONS (5)
  - BONE PAIN [None]
  - CERVICOBRACHIAL SYNDROME [None]
  - MUSCLE SPASMS [None]
  - NECK PAIN [None]
  - NUCHAL RIGIDITY [None]
